FAERS Safety Report 15864525 (Version 2)
Quarter: 2019Q1

REPORT INFORMATION
  Report Type: Spontaneous
  Country: PH (occurrence: PH)
  Receive Date: 20190124
  Receipt Date: 20190131
  Transmission Date: 20190417
  Serious: Yes (Life-Threatening, Hospitalization, Other)
  Sender: FDA-Public Use
  Company Number: PH-ELI_LILLY_AND_COMPANY-PH201901011638

PATIENT
  Age: 37 Year
  Sex: Male
  Weight: 66 kg

DRUGS (1)
  1. ERBITUX [Suspect]
     Active Substance: CETUXIMAB
     Indication: SALIVARY GLAND NEOPLASM
     Dosage: 600 MG, UNKNOWN
     Route: 042
     Dates: start: 20190119, end: 20190119

REACTIONS (2)
  - Off label use [Unknown]
  - Anaphylactic shock [Recovered/Resolved]

NARRATIVE: CASE EVENT DATE: 20190119
